FAERS Safety Report 20109502 (Version 1)
Quarter: 2021Q4

REPORT INFORMATION
  Report Type: Spontaneous
  Country: US (occurrence: None)
  Receive Date: 20211124
  Receipt Date: 20211124
  Transmission Date: 20220303
  Serious: Yes (Hospitalization)
  Sender: FDA-Public Use
  Company Number: None

PATIENT
  Age: 37 Year
  Sex: Female

DRUGS (20)
  1. HUMIRA [Suspect]
     Active Substance: ADALIMUMAB
     Indication: Hidradenitis
     Dosage: OTHER FREQUENCY : EVERY WEEK;?
     Route: 058
     Dates: start: 20180220
  2. ASPIRIN [Concomitant]
     Active Substance: ASPIRIN
  3. ATORVASTATIN [Concomitant]
     Active Substance: ATORVASTATIN
  4. CITALOPRAM [Concomitant]
     Active Substance: CITALOPRAM HYDROBROMIDE
  5. FLUTICASONE [Concomitant]
     Active Substance: FLUTICASONE
  6. HUMULIN NOS [Concomitant]
     Active Substance: INSULIN HUMAN
  7. HYDROCORTISONE [Concomitant]
     Active Substance: HYDROCORTISONE
  8. ALBUTEROL\IPRATROPIUM [Concomitant]
     Active Substance: ALBUTEROL\IPRATROPIUM
  9. LEVORA [Concomitant]
     Active Substance: ETHINYL ESTRADIOL\LEVONORGESTREL
  10. LISINOPRIL [Concomitant]
     Active Substance: LISINOPRIL
  11. METFORMIN [Concomitant]
     Active Substance: METFORMIN HYDROCHLORIDE
  12. MINOCYCLINE [Concomitant]
     Active Substance: MINOCYCLINE HYDROCHLORIDE
  13. MONTELUKAST [Concomitant]
     Active Substance: MONTELUKAST SODIUM
  14. OZEMPIC [Concomitant]
     Active Substance: SEMAGLUTIDE
  15. PIOGLITAZONE [Concomitant]
     Active Substance: PIOGLITAZONE
  16. PROAIR HFA [Concomitant]
     Active Substance: ALBUTEROL SULFATE
  17. RIFAMPIN [Concomitant]
     Active Substance: RIFAMPIN
  18. TOPIRAMATE [Concomitant]
     Active Substance: TOPIRAMATE
  19. TRULICITY [Concomitant]
     Active Substance: DULAGLUTIDE
  20. WIXELA INHUB [Concomitant]
     Active Substance: FLUTICASONE PROPIONATE\SALMETEROL XINAFOATE

REACTIONS (3)
  - Cellulitis [None]
  - Condition aggravated [None]
  - Pain [None]

NARRATIVE: CASE EVENT DATE: 20211119
